FAERS Safety Report 11265539 (Version 1)
Quarter: 2015Q3

REPORT INFORMATION
  Report Type: Spontaneous
  Country: JP (occurrence: JP)
  Receive Date: 20150713
  Receipt Date: 20150713
  Transmission Date: 20151125
  Serious: Yes (Other)
  Sender: FDA-Public Use
  Company Number: GXJP2015JP000916

PATIENT
  Age: 70 Year
  Sex: Male

DRUGS (2)
  1. CEFEPIME DIHYDROCHLORIDE FOR INTRAVENOUS INJECTION [Suspect]
     Active Substance: CEFEPIME HYDROCHLORIDE
     Indication: INFECTION
     Dosage: 4 G, QD
     Route: 042
     Dates: start: 20150520, end: 20150625
  2. CEFEPIME DIHYDROCHLORIDE FOR INTRAVENOUS INJECTION [Suspect]
     Active Substance: CEFEPIME HYDROCHLORIDE
     Indication: PLEURISY

REACTIONS (1)
  - Interstitial lung disease [Unknown]

NARRATIVE: CASE EVENT DATE: 201506
